FAERS Safety Report 17751882 (Version 1)
Quarter: 2020Q2

REPORT INFORMATION
  Report Type: Spontaneous
  Country: ES (occurrence: ES)
  Receive Date: 20200506
  Receipt Date: 20200506
  Transmission Date: 20200714
  Serious: Yes (Hospitalization, Other)
  Sender: FDA-Public Use
  Company Number: ES-PFIZER INC-2020178687

PATIENT
  Age: 73 Year
  Sex: Male

DRUGS (5)
  1. DOLQUINE [Suspect]
     Active Substance: HYDROXYCHLOROQUINE SULFATE
     Indication: COVID-19 PNEUMONIA
     Dosage: 400 MG, DAILY
     Route: 048
     Dates: start: 20200320, end: 20200407
  2. DOLQUINE [Suspect]
     Active Substance: HYDROXYCHLOROQUINE SULFATE
     Indication: PNEUMONIA
  3. AZITHROMYCIN ANHYDROUS. [Suspect]
     Active Substance: AZITHROMYCIN ANHYDROUS
     Indication: CORONAVIRUS INFECTION
     Dosage: 500 MG, DAILY
     Route: 048
     Dates: start: 20200322, end: 20200407
  4. PIPERACILLIN/TAZOBACTAM [Suspect]
     Active Substance: PIPERACILLIN SODIUM\TAZOBACTAM SODIUM
     Indication: CORONAVIRUS INFECTION
     Dosage: C/24H
     Route: 042
     Dates: start: 20200321, end: 20200405
  5. ERTAPENEM. [Suspect]
     Active Substance: ERTAPENEM SODIUM
     Indication: CORONAVIRUS INFECTION
     Dosage: 1 G, DAILY
     Route: 042
     Dates: start: 20200324, end: 20200403

REACTIONS (5)
  - Bradycardia [Recovering/Resolving]
  - Haemorrhage [Recovering/Resolving]
  - Product use in unapproved indication [Unknown]
  - Hepatitis acute [Recovering/Resolving]
  - Off label use [Unknown]

NARRATIVE: CASE EVENT DATE: 20200322
